FAERS Safety Report 24252853 (Version 2)
Quarter: 2024Q3

REPORT INFORMATION
  Report Type: Spontaneous
  Country: US (occurrence: US)
  Receive Date: 20240827
  Receipt Date: 20240927
  Transmission Date: 20241017
  Serious: No
  Sender: NOVARTIS
  Company Number: US-002147023-NVSC2024US172741

PATIENT
  Sex: Male

DRUGS (2)
  1. LEQVIO [Suspect]
     Active Substance: INCLISIRAN SODIUM
     Indication: Hyperlipidaemia
     Dosage: UNK
     Route: 065
     Dates: start: 20240822
  2. LEQVIO [Suspect]
     Active Substance: INCLISIRAN SODIUM
     Dosage: 300 MG (FIRST DOSE)
     Route: 058
     Dates: start: 20240826

REACTIONS (8)
  - Pyrexia [Recovering/Resolving]
  - Pain [Recovering/Resolving]
  - Decreased appetite [Unknown]
  - Lethargy [Recovering/Resolving]
  - Influenza like illness [Unknown]
  - Fatigue [Unknown]
  - Chills [Unknown]
  - SARS-CoV-2 test negative [Unknown]
